FAERS Safety Report 14505312 (Version 1)
Quarter: 2018Q1

REPORT INFORMATION
  Report Type: Report from Study
  Country: IE (occurrence: IE)
  Receive Date: 20180208
  Receipt Date: 20180208
  Transmission Date: 20180509
  Serious: Yes (Death)
  Sender: FDA-Public Use
  Company Number: IE-ASTRAZENECA-2018SE16449

PATIENT
  Age: 13 Month
  Sex: Female

DRUGS (5)
  1. BOSENTAN. [Concomitant]
     Active Substance: BOSENTAN
  2. SILDENAFIL. [Concomitant]
     Active Substance: SILDENAFIL
  3. GALFER [Concomitant]
     Active Substance: IRON
     Route: 048
  4. SYNAGIS [Suspect]
     Active Substance: PALIVIZUMAB
     Indication: HEART DISEASE CONGENITAL
     Route: 030
     Dates: start: 20161109, end: 20170206
  5. ASPIRIN. [Concomitant]
     Active Substance: ASPIRIN

REACTIONS (1)
  - Death [Fatal]
